FAERS Safety Report 9336384 (Version 2)
Quarter: 2013Q3

REPORT INFORMATION
  Report Type: Spontaneous
  Country: JP (occurrence: JP)
  Receive Date: 20130607
  Receipt Date: 20130708
  Transmission Date: 20140515
  Serious: Yes (Death, Life-Threatening, Other)
  Sender: FDA-Public Use
  Company Number: JP-JNJFOC-20130106696

PATIENT
  Age: 54 Year
  Sex: Female
  Weight: 53 kg

DRUGS (22)
  1. DOXORUBICIN HYDROCHLORIDE (DOXIL) [Suspect]
     Indication: OVARIAN CANCER RECURRENT
     Dosage: WITH 3RD CYCLE
     Route: 042
     Dates: start: 20091027, end: 20091027
  2. DOXORUBICIN HYDROCHLORIDE (DOXIL) [Suspect]
     Indication: OVARIAN CANCER RECURRENT
     Dosage: WITH 3RD CYCLE
     Route: 042
     Dates: start: 20091124, end: 20091124
  3. DOXORUBICIN HYDROCHLORIDE (DOXIL) [Suspect]
     Indication: OVARIAN CANCER RECURRENT
     Dosage: WITH 3RD CYCLE
     Route: 042
     Dates: start: 20090929, end: 20090929
  4. DUROTEP MT [Suspect]
     Indication: CANCER PAIN
     Route: 062
     Dates: start: 20091005
  5. DUROTEP MT [Suspect]
     Indication: CANCER PAIN
     Route: 062
     Dates: start: 20091129
  6. DUROTEP MT [Suspect]
     Indication: CANCER PAIN
     Route: 062
     Dates: start: 20091124, end: 20091127
  7. KYTRIL [Concomitant]
     Indication: OVARIAN CANCER RECURRENT
     Route: 042
     Dates: start: 20090929, end: 20091124
  8. DEXART [Concomitant]
     Indication: OVARIAN CANCER RECURRENT
     Route: 042
     Dates: start: 20090929, end: 20091124
  9. PYDOXAL [Concomitant]
     Indication: STOMATITIS
     Dosage: ENTERIC COATING DRUG
     Route: 048
     Dates: start: 20090929, end: 20091124
  10. ALLOPURINOL [Concomitant]
     Indication: STOMATITIS
     Dosage: LIQUID MEDICINE FOR INTERNAL USE
     Route: 049
     Dates: start: 20090929, end: 20091124
  11. OXYCONTIN [Concomitant]
     Indication: CANCER PAIN
     Route: 048
     Dates: start: 20090511, end: 20091127
  12. PRIMPERAN [Concomitant]
     Indication: OVARIAN CANCER RECURRENT
     Route: 042
     Dates: start: 20091006, end: 20091008
  13. MORPHINE HYDROCHLORIDE [Concomitant]
     Indication: CANCER PAIN
     Route: 058
     Dates: start: 20091125, end: 20091209
  14. HEPARIN SODIUM [Concomitant]
     Indication: PULMONARY EMBOLISM
     Dosage: 15000 LU
     Route: 042
     Dates: start: 20091125, end: 20091125
  15. ZOMETA [Concomitant]
     Indication: METASTASES TO BONE
     Route: 042
     Dates: start: 20091127, end: 20091127
  16. SERENACE [Concomitant]
     Indication: DELIRIUM
     Route: 042
     Dates: start: 20091207, end: 20091207
  17. GRAN [Concomitant]
     Indication: GRANULOCYTOPENIA
     Route: 058
     Dates: start: 20091208, end: 20091208
  18. LAXOBERON [Concomitant]
     Indication: CONSTIPATION
     Dosage: 10-15 DROPS; 5-7.5 MG
     Route: 048
     Dates: start: 20090930, end: 20090930
  19. VOLTAREN [Concomitant]
     Indication: CANCER PAIN
     Dosage: 10-15 DROPS
     Route: 048
     Dates: start: 20090831, end: 20091007
  20. AMOBAN [Concomitant]
     Indication: INSOMNIA
     Dosage: 10-15 DROPS
     Route: 048
     Dates: start: 20091206, end: 20091206
  21. OMEPRAL [Concomitant]
     Indication: GASTRIC ULCER
     Dosage: 10-15 DROPS
     Route: 048
     Dates: start: 20091008, end: 20091203
  22. MAGNESIUM OXIDE [Concomitant]
     Indication: CONSTIPATION
     Dosage: 10-15 DROPS
     Route: 048
     Dates: start: 20091111, end: 20091203

REACTIONS (13)
  - Ovarian cancer recurrent [Fatal]
  - Asthenia [Fatal]
  - Bone marrow failure [Not Recovered/Not Resolved]
  - Pulmonary embolism [Recovered/Resolved]
  - Delirium [Unknown]
  - Pleural effusion [Not Recovered/Not Resolved]
  - Condition aggravated [Not Recovered/Not Resolved]
  - Gastric ulcer [Not Recovered/Not Resolved]
  - Dyspnoea [Not Recovered/Not Resolved]
  - Oedema peripheral [Not Recovered/Not Resolved]
  - Stomatitis [Unknown]
  - Insomnia [Not Recovered/Not Resolved]
  - Somnolence [Recovered/Resolved]
